FAERS Safety Report 20382520 (Version 1)
Quarter: 2022Q1

REPORT INFORMATION
  Report Type: Report from Study
  Country: US (occurrence: US)
  Receive Date: 20220127
  Receipt Date: 20220127
  Transmission Date: 20220424
  Serious: Yes (Other)
  Sender: FDA-Public Use
  Company Number: US-JNJFOC-20220135847

PATIENT
  Age: 55 Year
  Sex: Male

DRUGS (1)
  1. PONESIMOD [Suspect]
     Active Substance: PONESIMOD
     Indication: Relapsing multiple sclerosis
     Dosage: PONVORY FC TABLET 2.00 MG, 3.00 MG,?4.00 MG, 5.00 MG, 6.00 MG, 7.00 MG,?8.00 MG, 9.00 MG, 10.00 MG
     Route: 048
     Dates: start: 20220114

REACTIONS (3)
  - Vision blurred [Recovering/Resolving]
  - Headache [Recovering/Resolving]
  - Urine odour abnormal [Unknown]

NARRATIVE: CASE EVENT DATE: 20220114
